FAERS Safety Report 17262879 (Version 1)
Quarter: 2020Q1

REPORT INFORMATION
  Report Type: Spontaneous
  Country: FR (occurrence: FR)
  Receive Date: 20200113
  Receipt Date: 20200113
  Transmission Date: 20200409
  Serious: Yes (Other)
  Sender: FDA-Public Use
  Company Number: FR-MYLANLABS-2020M1002797

PATIENT
  Age: 89 Year
  Sex: Male
  Weight: 73 kg

DRUGS (4)
  1. OROZAMUDOL [Suspect]
     Active Substance: TRAMADOL
     Indication: ANALGESIC INTERVENTION SUPPORTIVE THERAPY
     Dosage: 200 MILLIGRAM, QD
     Route: 048
     Dates: start: 201903, end: 201903
  2. LYRICA [Suspect]
     Active Substance: PREGABALIN
     Indication: ANALGESIC INTERVENTION SUPPORTIVE THERAPY
     Dosage: 75 MILLIGRAM, QD
     Route: 048
     Dates: start: 201903, end: 201903
  3. PARACETAMOL [Concomitant]
     Active Substance: ACETAMINOPHEN
     Dosage: UNK
  4. OROZAMUDOL 50 MG, COMPRIM? ORODISPERSIBLE [Suspect]
     Active Substance: TRAMADOL
     Indication: ANALGESIC INTERVENTION SUPPORTIVE THERAPY
     Dosage: 50 MILLIGRAM, QD
     Route: 048
     Dates: start: 201903, end: 201903

REACTIONS (2)
  - Muscle contractions involuntary [Recovered/Resolved]
  - Nightmare [Recovered/Resolved]

NARRATIVE: CASE EVENT DATE: 201903
